FAERS Safety Report 7294627-X (Version None)
Quarter: 2011Q1

REPORT INFORMATION
  Report Type: 
  Country: None (occurrence: None)
  Receive Date: 20110202
  Receipt Date: 20110113
  Transmission Date: 20110831
  Serious: Yes (Death)
  Sender: FDA-Public Use
  Company Number: 54973

PATIENT
  Sex: Female

DRUGS (1)
  1. HYLAND'S TEETHING TABLETS [Suspect]
     Indication: TEETHING
     Dosage: OFF/ON FOR 2 WEEKS

REACTIONS (5)
  - LETHARGY [None]
  - PULSE ABSENT [None]
  - RESUSCITATION [None]
  - FATIGUE [None]
  - UNRESPONSIVE TO STIMULI [None]
